FAERS Safety Report 6368680-1 (Version None)
Quarter: 2009Q3

REPORT INFORMATION
  Report Type: 
  Country: None (occurrence: None)
  Receive Date: 20090917
  Receipt Date: 20090917
  Transmission Date: 20100115
  Serious: Yes (Other)
  Sender: FDA-Public Use
  Company Number: None

PATIENT
  Age: 51 Year
  Sex: Female
  Weight: 125.1928 kg

DRUGS (2)
  1. FAMOTIDINE [Suspect]
     Indication: GASTROOESOPHAGEAL REFLUX DISEASE
     Dosage: ONE TABLET AT BEDTIME PO
     Route: 048
     Dates: start: 20090912, end: 20090914
  2. FAMOTIDINE [Suspect]
     Indication: ULCER
     Dosage: ONE TABLET AT BEDTIME PO
     Route: 048
     Dates: start: 20090912, end: 20090914

REACTIONS (7)
  - ABNORMAL BEHAVIOUR [None]
  - ANXIETY [None]
  - DYSPEPSIA [None]
  - FEELING ABNORMAL [None]
  - FEELING HOT [None]
  - HEADACHE [None]
  - HYPERHIDROSIS [None]
